FAERS Safety Report 4305324-4 (Version None)
Quarter: 2004Q1

REPORT INFORMATION
  Report Type: 
  Country: None (occurrence: None)
  Receive Date: 20040226
  Receipt Date: 20030509
  Transmission Date: 20041129
  Serious: Yes (Hospitalization, Other)
  Sender: FDA-Public Use
  Company Number: US-BRISTOL-MYERS SQUIBB COMPANY-12274072

PATIENT
  Age: 45 Year
  Sex: Female
  Weight: 78 kg

DRUGS (10)
  1. TAXOL [Suspect]
     Indication: BREAST CANCER
     Route: 042
     Dates: start: 20030505, end: 20030505
  2. BENADRYL [Concomitant]
     Indication: PREMEDICATION
     Route: 042
     Dates: start: 20030505, end: 20030505
  3. TAGAMET [Concomitant]
     Indication: PREMEDICATION
     Route: 042
     Dates: start: 20030505, end: 20030505
  4. ZOFRAN [Concomitant]
     Indication: PREMEDICATION
     Route: 042
     Dates: start: 20030505, end: 20030505
  5. DECADRON [Concomitant]
     Indication: PREMEDICATION
     Route: 042
     Dates: start: 20030505, end: 20030505
  6. SYNTHROID [Concomitant]
  7. ELAVIL [Concomitant]
  8. VITAMIN B6 [Concomitant]
  9. MELLARIL [Concomitant]
  10. ATIVAN [Concomitant]

REACTIONS (2)
  - CONVULSION [None]
  - LOSS OF CONSCIOUSNESS [None]
